FAERS Safety Report 24529112 (Version 1)
Quarter: 2024Q4

REPORT INFORMATION
  Report Type: Spontaneous
  Country: US (occurrence: None)
  Receive Date: 20241018
  Receipt Date: 20241018
  Transmission Date: 20250115
  Serious: Yes (Life-Threatening, Hospitalization)
  Sender: Public
  Company Number: None

PATIENT
  Age: 53 Year
  Sex: Male

DRUGS (1)
  1. TALTZ [Suspect]
     Active Substance: IXEKIZUMAB
     Route: 058
     Dates: start: 20240315, end: 20240827

REACTIONS (5)
  - Necrotising fasciitis [None]
  - Pain in extremity [None]
  - Joint injury [None]
  - Injury [None]
  - Oedema peripheral [None]

NARRATIVE: CASE EVENT DATE: 20240915
